FAERS Safety Report 5515704-7 (Version None)
Quarter: 2007Q4

REPORT INFORMATION
  Report Type: 
  Country: None (occurrence: None)
  Receive Date: 20071113
  Receipt Date: 20071015
  Transmission Date: 20080405
  Serious: No
  Sender: FDA-Public Use
  Company Number: A0678448A

PATIENT
  Age: 79 Year
  Sex: Male

DRUGS (10)
  1. COREG [Suspect]
     Dosage: 3.125MG TWICE PER DAY
     Route: 048
     Dates: start: 20061201
  2. COREG CR [Suspect]
     Dosage: 20MG PER DAY
     Route: 048
     Dates: start: 20070501
  3. VASOTEC [Concomitant]
  4. QUINIDINE SULFATE [Concomitant]
  5. VALIUM [Concomitant]
     Dosage: 5MG THREE TIMES PER DAY
  6. LASIX [Concomitant]
     Dosage: 40MG TWICE PER DAY
  7. FLOMAX [Concomitant]
  8. ZOCOR [Concomitant]
     Dosage: 20MG PER DAY
  9. POTASSIUM CHLORIDE [Concomitant]
  10. VICODIN [Concomitant]

REACTIONS (2)
  - BRADYCARDIA [None]
  - TINNITUS [None]
